FAERS Safety Report 6438535-2 (Version None)
Quarter: 2009Q4

REPORT INFORMATION
  Report Type: 
  Country: None (occurrence: None)
  Receive Date: 20091110
  Receipt Date: 20091026
  Transmission Date: 20100525
  Serious: Yes (Hospitalization)
  Sender: FDA-Public Use
  Company Number: 002223

PATIENT
  Sex: Female
  Weight: 63 kg

DRUGS (2)
  1. VIMPAT [Suspect]
     Indication: EPILEPSY
     Dosage: (100 MG BID ORAL)
     Route: 048
     Dates: start: 20091003
  2. GABAPENTIN [Concomitant]

REACTIONS (3)
  - ANXIETY [None]
  - GRAND MAL CONVULSION [None]
  - SLEEP DISORDER [None]
